FAERS Safety Report 20805515 (Version 1)
Quarter: 2022Q2

REPORT INFORMATION
  Report Type: Spontaneous
  Country: US (occurrence: US)
  Receive Date: 20220510
  Receipt Date: 20220510
  Transmission Date: 20220721
  Serious: No
  Sender: FDA-Public Use
  Company Number: US-BRISTOL-MYERS SQUIBB COMPANY-2022-030052

PATIENT
  Age: 75 Year
  Sex: Female

DRUGS (2)
  1. POMALYST [Suspect]
     Active Substance: POMALIDOMIDE
     Indication: Plasma cell myeloma
     Route: 048
     Dates: start: 20201025
  2. POMALYST [Suspect]
     Active Substance: POMALIDOMIDE
     Route: 048
     Dates: start: 20220331

REACTIONS (3)
  - Nasal ulcer [Recovering/Resolving]
  - Pain [Recovering/Resolving]
  - Sinusitis [Unknown]

NARRATIVE: CASE EVENT DATE: 20220426
